FAERS Safety Report 19211988 (Version 1)
Quarter: 2021Q2

REPORT INFORMATION
  Report Type: Spontaneous
  Country: US (occurrence: US)
  Receive Date: 20210504
  Receipt Date: 20210504
  Transmission Date: 20210717
  Serious: Yes (Death)
  Sender: FDA-Public Use
  Company Number: None

PATIENT
  Age: 49 Year
  Sex: Female

DRUGS (11)
  1. FUROSEMIDE 20MG [Concomitant]
     Active Substance: FUROSEMIDE
  2. ATORVASTATIN 40MG [Concomitant]
     Active Substance: ATORVASTATIN
  3. ELIQUIS [Concomitant]
     Active Substance: APIXABAN
  4. SPIRINOLACTONE 25MG [Concomitant]
  5. SILDENAFIL. [Suspect]
     Active Substance: SILDENAFIL
     Indication: PULMONARY ARTERIAL HYPERTENSION
     Route: 048
     Dates: start: 20210407
  6. ELIQUIS [Concomitant]
     Active Substance: APIXABAN
  7. PREDNISONE 20MG [Concomitant]
     Active Substance: PREDNISONE
  8. BACTRIM DS [Concomitant]
     Active Substance: SULFAMETHOXAZOLE\TRIMETHOPRIM
  9. LEVETIRACETAM 500MG [Concomitant]
     Active Substance: LEVETIRACETAM
  10. VITAMIN D AQUEOUS 400U/ML [Concomitant]
  11. METOPROLOL TARTRATE 50MG [Concomitant]
     Active Substance: METOPROLOL TARTRATE

REACTIONS (2)
  - Systemic lupus erythematosus [None]
  - Disease complication [None]

NARRATIVE: CASE EVENT DATE: 20210504
